FAERS Safety Report 23147009 (Version 11)
Quarter: 2024Q2

REPORT INFORMATION
  Report Type: Spontaneous
  Country: CA (occurrence: CA)
  Receive Date: 20231106
  Receipt Date: 20240515
  Transmission Date: 20240716
  Serious: Yes (Hospitalization, Other)
  Sender: FDA-Public Use
  Company Number: CA-CELLTRION INC.-2023CA016926

PATIENT

DRUGS (13)
  1. INFLECTRA [Suspect]
     Active Substance: INFLIXIMAB-DYYB
     Indication: Crohn^s disease
     Dosage: 10 MG/KG, W 0, 2, 6 WEEKS THEN EVERY 8 WEEKS, HOSPITAL START (INDUCTION HOSPITAL START)
     Route: 042
     Dates: start: 20230818
  2. INFLECTRA [Suspect]
     Active Substance: INFLIXIMAB-DYYB
     Dosage: 10 MG/KG, W 0, 2, 6 WEEKS THEN EVERY 8 WEEKS
     Route: 042
     Dates: start: 20230831
  3. INFLECTRA [Suspect]
     Active Substance: INFLIXIMAB-DYYB
     Dosage: 10 MG/KG (530 MG), W 0, 2, 6 WEEKS THEN EVERY 8 WEEKS (WEEK 6 DOSE)
     Route: 042
     Dates: start: 20230928
  4. INFLECTRA [Suspect]
     Active Substance: INFLIXIMAB-DYYB
     Dosage: 10 MG/KG, EVERY 4 WEEKS (REGIMEN STARTED IN HOSPITAL)
     Route: 042
     Dates: start: 202310
  5. INFLECTRA [Suspect]
     Active Substance: INFLIXIMAB-DYYB
     Dosage: 500MG, EVERY 4 WEEKS (7 WEEKS AND 6 DAYS)
     Route: 042
     Dates: start: 20231122
  6. INFLECTRA [Suspect]
     Active Substance: INFLIXIMAB-DYYB
     Dosage: 540 MG, EVERY 4 WEEKS
     Route: 042
     Dates: start: 20231220, end: 20231220
  7. INFLECTRA [Suspect]
     Active Substance: INFLIXIMAB-DYYB
     Dosage: 10 MG/KG (540 MG), AFTER 4 WEEKS AND 1 DAY (EVERY 4 WEEKS)
     Route: 042
     Dates: start: 20240118
  8. INFLECTRA [Suspect]
     Active Substance: INFLIXIMAB-DYYB
     Dosage: 10 MG/KG (550MG), EVERY 4 WEEKS
     Route: 042
     Dates: start: 20240213
  9. INFLECTRA [Suspect]
     Active Substance: INFLIXIMAB-DYYB
     Dosage: 10 MG/KG, EVERY 4 WEEKS
     Route: 042
     Dates: start: 20240312
  10. INFLECTRA [Suspect]
     Active Substance: INFLIXIMAB-DYYB
     Dosage: 10 MG/KG (570 MG), EVERY 4 WEEKS
     Route: 042
     Dates: start: 20240411, end: 20240411
  11. ASPIRIN [Concomitant]
     Active Substance: ASPIRIN
     Dosage: ABOUT 1.5 YEARS
     Dates: start: 2022
  12. PREDNISONE [Concomitant]
     Active Substance: PREDNISONE
     Dosage: 40 MG
  13. PREDNISONE [Concomitant]
     Active Substance: PREDNISONE
     Dosage: 1 DF
     Dates: start: 202308

REACTIONS (25)
  - Constipation [Recovering/Resolving]
  - Abdominal pain [Recovered/Resolved]
  - Colitis [Recovered/Resolved]
  - Eating disorder [Recovering/Resolving]
  - Influenza [Recovered/Resolved]
  - Condition aggravated [Not Recovered/Not Resolved]
  - Intestinal obstruction [Recovering/Resolving]
  - Pneumonia bacterial [Recovering/Resolving]
  - Fatigue [Not Recovered/Not Resolved]
  - Alopecia [Not Recovered/Not Resolved]
  - Therapeutic product effect delayed [Unknown]
  - Drug ineffective [Unknown]
  - Anal fissure [Recovered/Resolved]
  - Pain [Not Recovered/Not Resolved]
  - Aphthous ulcer [Recovered/Resolved]
  - Muscle spasms [Not Recovered/Not Resolved]
  - Hypotension [Not Recovered/Not Resolved]
  - Arthralgia [Recovered/Resolved]
  - Dyspnoea [Recovering/Resolving]
  - Abdominal distension [Not Recovered/Not Resolved]
  - Apathy [Not Recovered/Not Resolved]
  - Anosmia [Not Recovered/Not Resolved]
  - Off label use [Unknown]
  - Off label use [Unknown]
  - Inappropriate schedule of product administration [Unknown]

NARRATIVE: CASE EVENT DATE: 20230101
